FAERS Safety Report 8062969-6 (Version None)
Quarter: 2012Q1

REPORT INFORMATION
  Report Type: 
  Country: None (occurrence: None)
  Receive Date: 20120123
  Receipt Date: 20120118
  Transmission Date: 20120608
  Serious: Yes (Hospitalization)
  Sender: FDA-Public Use
  Company Number: TW-EISAI INC-E2020-10233-SPO-TW

PATIENT
  Age: 71 Year
  Sex: Female
  Weight: 78 kg

DRUGS (2)
  1. ARICEPT [Suspect]
     Route: 048
     Dates: start: 20110322, end: 20110418
  2. ARICEPT [Suspect]
     Route: 048
     Dates: start: 20110419, end: 20120107

REACTIONS (4)
  - ABDOMINAL PAIN [None]
  - ALTERED STATE OF CONSCIOUSNESS [None]
  - CHILLS [None]
  - PYREXIA [None]
